FAERS Safety Report 5003876-2 (Version None)
Quarter: 2006Q2

REPORT INFORMATION
  Report Type: 
  Country: None (occurrence: None)
  Receive Date: 20060515
  Receipt Date: 20060502
  Transmission Date: 20061013
  Serious: Yes (Hospitalization)
  Sender: FDA-Public Use
  Company Number: DE-2006-002947

PATIENT
  Age: 35 Year
  Sex: Female

DRUGS (1)
  1. BETAFERON (INTERFERON BETA-1B) INJECTION, 250UG [Suspect]
     Indication: MULTIPLE SCLEROSIS
     Dosage: SUBCUTANEOUS
     Route: 058
     Dates: start: 20040101

REACTIONS (6)
  - INJECTION SITE ABSCESS [None]
  - INJECTION SITE DISCOLOURATION [None]
  - INJECTION SITE INFLAMMATION [None]
  - INJECTION SITE NECROSIS [None]
  - INJECTION SITE PAIN [None]
  - PANNICULITIS [None]
